FAERS Safety Report 22293970 (Version 1)
Quarter: 2023Q2

REPORT INFORMATION
  Report Type: Report from Study
  Country: PK (occurrence: PK)
  Receive Date: 20230508
  Receipt Date: 20230508
  Transmission Date: 20230721
  Serious: Yes (Death)
  Sender: FDA-Public Use
  Company Number: PK-002147023-NVSC2023PK104757

PATIENT
  Sex: Female
  Weight: 54 kg

DRUGS (1)
  1. GLIVEC [Suspect]
     Active Substance: IMATINIB MESYLATE
     Indication: Philadelphia positive chronic myeloid leukaemia
     Dosage: 200 MG, QD
     Route: 048
     Dates: start: 20210310, end: 20230427

REACTIONS (3)
  - Philadelphia positive chronic myeloid leukaemia [Fatal]
  - Malignant neoplasm progression [Fatal]
  - Vomiting [Fatal]
